FAERS Safety Report 8789022 (Version 1)
Quarter: 2012Q4

REPORT INFORMATION
  Report Type: Report from Study
  Country: FR (occurrence: FR)
  Receive Date: 20120916
  Receipt Date: 20120916
  Transmission Date: 20130627
  Serious: Yes (Hospitalization, Disabling)
  Sender: FDA-Public Use
  Company Number: FR-BRISTOL-MYERS SQUIBB COMPANY-14445456

PATIENT
  Age: 72 Year
  Sex: Female

DRUGS (5)
  1. IPILIMUMAB [Suspect]
     Indication: MALIGNANT MELANOMA
     Dosage: Initial dose = 21-Apr-2008
therapy dates 24mar07-24Oct07
     Route: 042
     Dates: start: 20081024, end: 20081024
  2. CORTANCYL [Concomitant]
     Dates: start: 2008
  3. NOVORAPID [Concomitant]
     Dates: start: 200706
  4. AZOPT [Concomitant]
     Dates: start: 20081105
  5. LANVIS [Concomitant]
     Dates: start: 200706

REACTIONS (2)
  - Toxic skin eruption [Recovered/Resolved]
  - Coma acidotic [Recovered/Resolved]
